FAERS Safety Report 6514698-5 (Version None)
Quarter: 2009Q4

REPORT INFORMATION
  Report Type: 
  Country: None (occurrence: None)
  Receive Date: 20091222
  Receipt Date: 20091222
  Transmission Date: 20100525
  Serious: Yes (Other)
  Sender: FDA-Public Use
  Company Number: None

PATIENT
  Age: 14 Year
  Sex: Male
  Weight: 104.3273 kg

DRUGS (5)
  1. DEPAKOTE ER [Suspect]
     Indication: ASPERGER'S DISORDER
     Dosage: 250 MG QHS PO
     Route: 048
     Dates: start: 20090730
  2. DEPAKOTE ER [Suspect]
     Dosage: 500MG QHS PO
     Route: 048
     Dates: start: 20090327
  3. GEODON [Concomitant]
  4. BUSPAR [Concomitant]
  5. STRATTERA [Concomitant]

REACTIONS (6)
  - AGGRESSION [None]
  - DISTURBANCE IN SOCIAL BEHAVIOUR [None]
  - IRRITABILITY [None]
  - MIDDLE INSOMNIA [None]
  - MOOD ALTERED [None]
  - TIC [None]
